FAERS Safety Report 23139432 (Version 1)
Quarter: 2023Q4

REPORT INFORMATION
  Report Type: Spontaneous
  Country: US (occurrence: US)
  Receive Date: 20231102
  Receipt Date: 20231102
  Transmission Date: 20240109
  Serious: Yes (Other)
  Sender: FDA-Public Use
  Company Number: US-SUN PHARMACEUTICAL INDUSTRIES LTD-2023R1-415848

PATIENT
  Age: 44 Year
  Sex: Male

DRUGS (6)
  1. NOREPINEPHRINE [Suspect]
     Active Substance: NOREPINEPHRINE
     Indication: Septic shock
     Dosage: 50 MICROGRAM/MIN.
     Route: 065
  2. NOREPINEPHRINE [Suspect]
     Active Substance: NOREPINEPHRINE
     Indication: Disseminated intravascular coagulation
  3. PHENYLEPHRINE [Suspect]
     Active Substance: PHENYLEPHRINE HYDROCHLORIDE
     Indication: Disseminated intravascular coagulation
     Dosage: 100 MICROGRAM/MIN.
     Route: 065
  4. PHENYLEPHRINE [Suspect]
     Active Substance: PHENYLEPHRINE HYDROCHLORIDE
     Indication: Septic shock
  5. VASOPRESSIN [Suspect]
     Active Substance: VASOPRESSIN
     Indication: Disseminated intravascular coagulation
     Dosage: 0.03 UNITS/MIN
     Route: 065
  6. VASOPRESSIN [Suspect]
     Active Substance: VASOPRESSIN
     Indication: Septic shock

REACTIONS (3)
  - Ischaemia [Unknown]
  - Livedo reticularis [Unknown]
  - Purpura [Unknown]
